FAERS Safety Report 6217793-3 (Version None)
Quarter: 2009Q2

REPORT INFORMATION
  Report Type: 
  Country: None (occurrence: None)
  Receive Date: 20090608
  Receipt Date: 20090601
  Transmission Date: 20091009
  Serious: Yes (Hospitalization)
  Sender: FDA-Public Use
  Company Number: US-AMGEN-KDL349733

PATIENT
  Sex: Female
  Weight: 45.4 kg

DRUGS (3)
  1. PROCRIT [Suspect]
     Indication: ANAEMIA
     Dates: start: 20070101
  2. NAMENDA [Concomitant]
  3. SLEEPING MEDICATION NOS [Concomitant]

REACTIONS (3)
  - DECUBITUS ULCER [None]
  - DEHYDRATION [None]
  - HAEMOGLOBIN DECREASED [None]
